FAERS Safety Report 13171535 (Version 2)
Quarter: 2017Q1

REPORT INFORMATION
  Report Type: Spontaneous
  Country: US (occurrence: US)
  Receive Date: 20170201
  Receipt Date: 20170207
  Transmission Date: 20170428
  Serious: Yes (Hospitalization, Other)
  Sender: FDA-Public Use
  Company Number: US-AUROBINDO-AUR-APL-2017-00312

PATIENT
  Age: 61 Year
  Sex: Male

DRUGS (1)
  1. AMIODARONE [Suspect]
     Active Substance: AMIODARONE
     Indication: PRODUCT USED FOR UNKNOWN INDICATION
     Dosage: UNK
     Route: 065

REACTIONS (9)
  - Dyspnoea [Recovering/Resolving]
  - Oedema peripheral [Recovering/Resolving]
  - Tremor [Recovering/Resolving]
  - Hyperthyroidism [Recovering/Resolving]
  - Tachycardia [Recovering/Resolving]
  - Lid lag [Recovering/Resolving]
  - Muscular weakness [Recovering/Resolving]
  - Palpitations [Recovering/Resolving]
  - Asthenia [Recovering/Resolving]
